FAERS Safety Report 13180643 (Version 3)
Quarter: 2017Q1

REPORT INFORMATION
  Report Type: Report from Study
  Country: CA (occurrence: CA)
  Receive Date: 20170202
  Receipt Date: 20170303
  Transmission Date: 20170428
  Serious: Yes (Other)
  Sender: FDA-Public Use
  Company Number: CA-JNJFOC-20161100035

PATIENT
  Age: 44 Year
  Sex: Female
  Weight: 73.48 kg

DRUGS (4)
  1. STELARA [Suspect]
     Active Substance: USTEKINUMAB
     Indication: CROHN^S DISEASE
     Route: 058
     Dates: start: 20161115
  2. STELARA [Suspect]
     Active Substance: USTEKINUMAB
     Indication: COLITIS ULCERATIVE
     Dosage: PREVIOUSLY REPORTED AS 180 MG.
     Route: 058
     Dates: start: 20161025
  3. STELARA [Suspect]
     Active Substance: USTEKINUMAB
     Indication: COLITIS ULCERATIVE
     Route: 058
     Dates: start: 20161115
  4. STELARA [Suspect]
     Active Substance: USTEKINUMAB
     Indication: CROHN^S DISEASE
     Dosage: PREVIOUSLY REPORTED AS 180 MG.
     Route: 058
     Dates: start: 20161025

REACTIONS (12)
  - Sinusitis [Unknown]
  - Nasopharyngitis [Not Recovered/Not Resolved]
  - Off label use [Unknown]
  - Skin exfoliation [Unknown]
  - Streptococcal infection [Unknown]
  - Product use issue [Unknown]
  - Pneumonia [Unknown]
  - Dysmenorrhoea [Unknown]
  - General physical health deterioration [Unknown]
  - Product use issue [Unknown]
  - Pruritus [Unknown]
  - Crohn^s disease [Not Recovered/Not Resolved]

NARRATIVE: CASE EVENT DATE: 2016
